FAERS Safety Report 12599991 (Version 2)
Quarter: 2016Q3

REPORT INFORMATION
  Report Type: Spontaneous
  Country: DE (occurrence: DE)
  Receive Date: 20160727
  Receipt Date: 20160801
  Transmission Date: 20161109
  Serious: Yes (Other)
  Sender: FDA-Public Use
  Company Number: DE-PFIZER INC-2016357586

PATIENT
  Age: 31 Year
  Sex: Female
  Weight: 48 kg

DRUGS (5)
  1. MIRTAZAPINE. [Concomitant]
     Active Substance: MIRTAZAPINE
     Indication: NAUSEA
     Dosage: IF REQUIRED. IN TOTAL ONLY FOR 3 DAYS. 2 TRIMESTER. 13.4. - GESTATIONAL WEEK
     Route: 048
  2. SERTRALINE HCL [Suspect]
     Active Substance: SERTRALINE HYDROCHLORIDE
     Indication: ANXIETY DISORDER
     Dosage: 75 MG, 1X/DAY
     Route: 048
     Dates: start: 20150223, end: 20150929
  3. GYNVITAL GRAVIDA [Concomitant]
     Active Substance: HERBALS
     Indication: PROPHYLAXIS OF NEURAL TUBE DEFECT
     Dosage: 0.4 MG, 1X/DAY 1 TRIMESTER 0. - 10. GESTATIONAL WEEK
     Route: 048
  4. GLUCOSE 5% INFUSION [Concomitant]
     Indication: NAUSEA
     Dosage: 2 TRIMESTER 13.4. - 13.4. GESTATIONAL WEEK
     Route: 042
     Dates: start: 20150529, end: 20150529
  5. TAVOR 1,0 EXPIDET [Concomitant]
     Dosage: 1 MG, SINGLE TRIMESTER: UNKNOWN TRIMESTER
     Route: 048

REACTIONS (7)
  - Amniotic cavity infection [Unknown]
  - Nausea [Unknown]
  - HELLP syndrome [Unknown]
  - Premature labour [Unknown]
  - Cholestasis [Unknown]
  - Hypertension [Unknown]
  - Gastritis [Unknown]
